FAERS Safety Report 4368578-4 (Version None)
Quarter: 2004Q2

REPORT INFORMATION
  Report Type: 
  Country: None (occurrence: None)
  Receive Date: 20040528
  Receipt Date: 20040517
  Transmission Date: 20050107
  Serious: No
  Sender: FDA-Public Use
  Company Number: 2004GB01207

PATIENT
  Age: 58 Year
  Sex: Male
  Weight: 75.5 kg

DRUGS (3)
  1. FELODIPINE [Suspect]
     Indication: HYPERTENSION
     Dosage: 5 MG DAILY PO
     Route: 048
     Dates: start: 20040209, end: 20040512
  2. RANITIDINE [Concomitant]
  3. PROPRANOLOL [Concomitant]

REACTIONS (2)
  - DIABETES MELLITUS [None]
  - GINGIVAL HYPERPLASIA [None]
